FAERS Safety Report 25140384 (Version 1)
Quarter: 2025Q1

REPORT INFORMATION
  Report Type: Spontaneous
  Country: US (occurrence: None)
  Receive Date: 20250328
  Receipt Date: 20250328
  Transmission Date: 20250409
  Serious: Yes (Hospitalization)
  Sender: FDA-CTU
  Company Number: None

PATIENT
  Age: 81 Year
  Sex: Male

DRUGS (1)
  1. AMLODIPINE BESYLATE [Suspect]
     Active Substance: AMLODIPINE BESYLATE
     Dosage: FREQUENCY : DAILY;?
     Route: 048
     Dates: end: 20241207

REACTIONS (4)
  - Anaphylactic reaction [None]
  - Angioedema [None]
  - Hypertensive urgency [None]
  - Cardiac failure acute [None]

NARRATIVE: CASE EVENT DATE: 20241207
